FAERS Safety Report 15424087 (Version 2)
Quarter: 2018Q4

REPORT INFORMATION
  Report Type: Report from Study
  Country: CO (occurrence: CO)
  Receive Date: 20180925
  Receipt Date: 20181017
  Transmission Date: 20190204
  Serious: Yes (Hospitalization)
  Sender: FDA-Public Use
  Company Number: PHHY2018CO100310

PATIENT
  Sex: Female
  Weight: 65 kg

DRUGS (1)
  1. TYKERB [Suspect]
     Active Substance: LAPATINIB DITOSYLATE
     Indication: BREAST CANCER
     Dosage: 1250 MG, QD
     Route: 048
     Dates: start: 20180626

REACTIONS (8)
  - Seizure [Unknown]
  - Hypoaesthesia [Unknown]
  - Dysstasia [Unknown]
  - Spinal fracture [Unknown]
  - Hypokinesia [Unknown]
  - Brain neoplasm [Unknown]
  - Weight decreased [Unknown]
  - Breast cancer recurrent [Unknown]
